FAERS Safety Report 14653496 (Version 3)
Quarter: 2018Q2

REPORT INFORMATION
  Report Type: Spontaneous
  Country: JP (occurrence: JP)
  Receive Date: 20180319
  Receipt Date: 20180626
  Transmission Date: 20180711
  Serious: Yes (Other)
  Sender: FDA-Public Use
  Company Number: JP-ASTELLAS-2018JP004846AA

PATIENT
  Age: 31 Year
  Sex: Female
  Weight: 57 kg

DRUGS (8)
  1. HEPARIN CA [Concomitant]
     Indication: HABITUAL ABORTION
     Route: 058
     Dates: start: 20180216, end: 20180309
  2. FOLIAMIN [Concomitant]
     Active Substance: FOLIC ACID
     Indication: PROPHYLAXIS
     Route: 048
     Dates: start: 20170513, end: 20180309
  3. LEBENIN-S [Concomitant]
     Indication: DYSBACTERIOSIS
     Dosage: 2 TABLETS, THRICE DAILY
     Route: 048
     Dates: start: 20180203, end: 20180309
  4. SAIREITO [Concomitant]
     Active Substance: HERBALS
     Indication: HABITUAL ABORTION
     Dosage: 4.05 G, TWICE DAILY
     Route: 048
     Dates: start: 20180203, end: 20180309
  5. BUFFERIN [Concomitant]
     Active Substance: ASPIRIN
     Indication: HABITUAL ABORTION
     Route: 048
     Dates: start: 20170513, end: 20180309
  6. TOKISHAKUYAKUSAN                   /08000701/ [Concomitant]
     Active Substance: HERBALS
     Indication: HABITUAL ABORTION
     Dosage: 6 TABLETS, THRICE DAILY
     Route: 048
     Dates: start: 20170513, end: 20180203
  7. FLAGYL [Concomitant]
     Active Substance: METRONIDAZOLE\METRONIDAZOLE HYDROCHLORIDE
     Indication: DYSBACTERIOSIS
     Route: 067
     Dates: start: 20180203, end: 20180210
  8. PROGRAF [Suspect]
     Active Substance: TACROLIMUS\TACROLIMUS ANHYDROUS
     Indication: RHEUMATOID ARTHRITIS
     Route: 048
     Dates: start: 201602

REACTIONS (3)
  - Prescribed underdose [Unknown]
  - Foetal death [Recovered/Resolved]
  - Maternal exposure during pregnancy [Unknown]

NARRATIVE: CASE EVENT DATE: 201602
